FAERS Safety Report 25063354 (Version 1)
Quarter: 2025Q1

REPORT INFORMATION
  Report Type: Spontaneous
  Country: US (occurrence: None)
  Receive Date: 20250310
  Receipt Date: 20250310
  Transmission Date: 20250409
  Serious: No
  Sender: FDA-CTU
  Company Number: None

PATIENT
  Age: 67 Year
  Sex: Female

DRUGS (1)
  1. DORZOLAMIDE\TIMOLOL [Suspect]
     Active Substance: DORZOLAMIDE\TIMOLOL
     Dosage: 1 GTT DROP(S) TWICE A DAY OPHTHALMIC ?
     Route: 047

REACTIONS (1)
  - Eye irritation [None]

NARRATIVE: CASE EVENT DATE: 20250310
